FAERS Safety Report 4646742-4 (Version None)
Quarter: 2005Q2

REPORT INFORMATION
  Report Type: 
  Country: None (occurrence: None)
  Receive Date: 20050425
  Receipt Date: 20050415
  Transmission Date: 20051028
  Serious: Yes (Hospitalization)
  Sender: FDA-Public Use
  Company Number: MK200504-0152-1

PATIENT
  Age: 31 Year
  Sex: Female

DRUGS (3)
  1. ANAFRANIL [Suspect]
     Indication: OVERDOSE
     Dosage: 1400 MG ONE TIME
     Dates: start: 20040515
  2. PHENOBARBITAL TAB [Suspect]
     Indication: OVERDOSE
     Dosage: 6660 MG ONE TIME
     Dates: start: 20040514
  3. CHLORPROMAZINE [Suspect]
     Indication: OVERDOSE
     Dosage: 3975 MG
     Dates: start: 20040515

REACTIONS (10)
  - COMA [None]
  - DECUBITUS ULCER [None]
  - DRUG TOXICITY [None]
  - ILEUS [None]
  - INTENTIONAL MISUSE [None]
  - INTESTINAL OBSTRUCTION [None]
  - MASS [None]
  - PNEUMONIA ASPIRATION [None]
  - REFUSAL OF TREATMENT BY PATIENT [None]
  - SELF INJURIOUS BEHAVIOUR [None]
